FAERS Safety Report 22322827 (Version 1)
Quarter: 2023Q2

REPORT INFORMATION
  Report Type: Spontaneous
  Country: US (occurrence: US)
  Receive Date: 20230516
  Receipt Date: 20230516
  Transmission Date: 20230722
  Serious: No
  Sender: FDA-Public Use
  Company Number: AXS2022-323

PATIENT
  Age: 20 Year
  Sex: Female
  Weight: 53.54 kg

DRUGS (13)
  1. SUNOSI [Suspect]
     Active Substance: SOLRIAMFETOL
     Indication: Narcolepsy
     Dosage: UNK
     Route: 048
  2. SUNOSI [Suspect]
     Active Substance: SOLRIAMFETOL
     Route: 048
  3. MODAFINIL [Concomitant]
     Active Substance: MODAFINIL
  4. ADDERALL [Concomitant]
     Active Substance: AMPHETAMINE ASPARTATE\AMPHETAMINE SULFATE\DEXTROAMPHETAMINE SACCHARATE\DEXTROAMPHETAMINE SULFATE
  5. XYWAV [Concomitant]
     Active Substance: CALCIUM OXYBATE\MAGNESIUM OXYBATE\POTASSIUM OXYBATE\SODIUM OXYBATE
     Dosage: 4.5 G TWICE PER NIGHT.
     Route: 065
  6. XANAX XR [Concomitant]
     Active Substance: ALPRAZOLAM
  7. ALPRAZOLAM [Concomitant]
     Active Substance: ALPRAZOLAM
     Dosage: 1 TAB(S), PO, QDAY, 0 REFILL(S)
     Route: 048
  8. Calcium/maylesium/potass/sodium oxybates [Concomitant]
     Dosage: 3 GRN, 6 ML, PO, BID, 0 REFILL(S).
  9. DROSPIRENONE\ETHINYL ESTRADIOL [Concomitant]
     Active Substance: DROSPIRENONE\ETHINYL ESTRADIOL
     Dosage: 1 TAB(S), PO, QDAY, 0 REFILL(S).
  10. LAMOTRIGINE [Concomitant]
     Active Substance: LAMOTRIGINE
     Dosage: 100 MG, 1 TAB(S), PO, QDAY, 0 REFILL(S).
  11. SERTRALINE [Concomitant]
     Active Substance: SERTRALINE HYDROCHLORIDE
     Dosage: 50 MG, 1 TAB(S), PO, QDAY, 0 REFILL(S).
  12. BENZODIAZEPINE [Concomitant]
     Active Substance: BENZODIAZEPINE
  13. RITALIN [Concomitant]
     Active Substance: METHYLPHENIDATE HYDROCHLORIDE

REACTIONS (2)
  - Weight decreased [Unknown]
  - Drug ineffective [Unknown]
